FAERS Safety Report 4362685-8 (Version None)
Quarter: 2004Q2

REPORT INFORMATION
  Report Type: 
  Country: None (occurrence: None)
  Receive Date: 20040517
  Receipt Date: 20040312
  Transmission Date: 20050107
  Serious: No
  Sender: FDA-Public Use
  Company Number: S04-USA-01988-01

PATIENT

DRUGS (2)
  1. NAMENDA [Suspect]
     Dosage: 10 MG PO
     Route: 048
     Dates: start: 20040301
  2. NAMENDA [Suspect]
     Dosage: 5 MG PO
     Route: 048
     Dates: start: 20040101, end: 20040301

REACTIONS (1)
  - RASH [None]
